FAERS Safety Report 19281706 (Version 1)
Quarter: 2021Q2

REPORT INFORMATION
  Report Type: Spontaneous
  Country: US (occurrence: US)
  Receive Date: 20210521
  Receipt Date: 20210521
  Transmission Date: 20210717
  Serious: No
  Sender: FDA-Public Use
  Company Number: US-CELGENEUS-USA-20210500715

PATIENT
  Sex: Female

DRUGS (2)
  1. REVLIMID [Suspect]
     Active Substance: LENALIDOMIDE
     Indication: FOLLICULAR LYMPHOMA
     Dosage: 20 MILLIGRAM
     Route: 048
     Dates: start: 20210402
  2. REVLIMID [Suspect]
     Active Substance: LENALIDOMIDE
     Indication: OFF LABEL USE

REACTIONS (3)
  - Medication error [Unknown]
  - Dizziness [Unknown]
  - Muscle spasms [Unknown]

NARRATIVE: CASE EVENT DATE: 202104
